FAERS Safety Report 24706924 (Version 1)
Quarter: 2024Q4

REPORT INFORMATION
  Report Type: Spontaneous
  Country: CA (occurrence: CA)
  Receive Date: 20241206
  Receipt Date: 20241206
  Transmission Date: 20250115
  Serious: Yes (Life-Threatening, Other)
  Sender: PFIZER
  Company Number: CA-PFIZER INC-202400316805

PATIENT
  Age: 62 Year
  Sex: Female

DRUGS (1)
  1. CARBOPLATIN [Suspect]
     Active Substance: CARBOPLATIN
     Dosage: UNK

REACTIONS (7)
  - Abdominal pain [Recovered/Resolved]
  - Anaphylactic reaction [Recovered/Resolved]
  - Chest discomfort [Recovered/Resolved]
  - Flushing [Recovered/Resolved]
  - Nausea [Recovered/Resolved]
  - Throat irritation [Recovered/Resolved]
  - Throat tightness [Recovered/Resolved]
